FAERS Safety Report 24640697 (Version 1)
Quarter: 2024Q4

REPORT INFORMATION
  Report Type: Spontaneous
  Country: US (occurrence: US)
  Receive Date: 20241120
  Receipt Date: 20241120
  Transmission Date: 20250115
  Serious: Yes (Other)
  Sender: AUROBINDO
  Company Number: US-AUROBINDO-AUR-APL-2024-056095

PATIENT
  Age: 60 Year
  Sex: Male

DRUGS (10)
  1. DOCETAXEL [Suspect]
     Active Substance: DOCETAXEL
     Indication: Hormone-refractory prostate cancer
     Dosage: UNK
     Route: 065
  2. ENZALUTAMIDE [Suspect]
     Active Substance: ENZALUTAMIDE
     Indication: Hormone-refractory prostate cancer
     Dosage: UNK
     Route: 065
     Dates: start: 20220919
  3. APALUTAMIDE [Suspect]
     Active Substance: APALUTAMIDE
     Indication: Hormone-refractory prostate cancer
     Dosage: UNK
     Route: 065
  4. LEUPROLIDE ACETATE [Suspect]
     Active Substance: LEUPROLIDE ACETATE
     Indication: Hormone-refractory prostate cancer
     Dosage: UNK
     Route: 065
  5. RADIUM RA-223 DICHLORIDE [Suspect]
     Active Substance: RADIUM RA-223 DICHLORIDE
     Indication: Hormone-refractory prostate cancer
     Dosage: UNK
     Route: 065
  6. RUCAPARIB [Suspect]
     Active Substance: RUCAPARIB
     Indication: Hormone-refractory prostate cancer
     Dosage: UNK
     Route: 065
     Dates: start: 20220919
  7. ABIRATERONE [Suspect]
     Active Substance: ABIRATERONE\ABIRATERONE ACETATE
     Indication: Metastasis
     Dosage: UNK
     Route: 065
  8. ABIRATERONE [Suspect]
     Active Substance: ABIRATERONE\ABIRATERONE ACETATE
     Indication: Hormone-refractory prostate cancer
  9. PREDNISONE [Concomitant]
     Active Substance: PREDNISONE
     Indication: Hormone-refractory prostate cancer
     Dosage: UNK
     Route: 065
  10. PREDNISONE [Concomitant]
     Active Substance: PREDNISONE
     Indication: Metastasis

REACTIONS (1)
  - Drug ineffective [Unknown]
